FAERS Safety Report 13963516 (Version 1)
Quarter: 2017Q3

REPORT INFORMATION
  Report Type: Spontaneous
  Country: US (occurrence: US)
  Receive Date: 20170913
  Receipt Date: 20170913
  Transmission Date: 20171128
  Serious: No
  Sender: FDA-Public Use
  Company Number: None

PATIENT
  Age: 67 Year
  Sex: Female

DRUGS (1)
  1. LIDOCAINE. [Suspect]
     Active Substance: LIDOCAINE
     Route: 061
     Dates: start: 20170407, end: 20170803

REACTIONS (4)
  - Device adhesion issue [None]
  - Device physical property issue [None]
  - Device ineffective [None]
  - Product adhesion issue [None]
